FAERS Safety Report 25260805 (Version 1)
Quarter: 2025Q2

REPORT INFORMATION
  Report Type: Spontaneous
  Country: US (occurrence: US)
  Receive Date: 20250501
  Receipt Date: 20250501
  Transmission Date: 20250717
  Serious: Yes (Other)
  Sender: NOVO NORDISK
  Company Number: US-NOVOPROD-1412899

PATIENT
  Age: 73 Year
  Sex: Female

DRUGS (1)
  1. OZEMPIC [Suspect]
     Active Substance: SEMAGLUTIDE
     Indication: Type 2 diabetes mellitus
     Dosage: 0.5 MG, QW

REACTIONS (8)
  - Dehydration [Not Recovered/Not Resolved]
  - Tremor [Not Recovered/Not Resolved]
  - Nervousness [Unknown]
  - Dizziness [Not Recovered/Not Resolved]
  - Abdominal discomfort [Unknown]
  - Blood glucose increased [Not Recovered/Not Resolved]
  - Nausea [Unknown]
  - Abdominal distension [Unknown]

NARRATIVE: CASE EVENT DATE: 20250410
